FAERS Safety Report 10668074 (Version 2)
Quarter: 2015Q1

REPORT INFORMATION
  Report Type: Spontaneous
  Country: US (occurrence: US)
  Receive Date: 20141222
  Receipt Date: 20150127
  Transmission Date: 20150720
  Serious: Yes (Hospitalization, Other)
  Sender: FDA-Public Use
  Company Number: US-SA-2014SA172972

PATIENT
  Age: 56 Year
  Sex: Male
  Weight: 109.8 kg

DRUGS (2)
  1. LASIX [Suspect]
     Active Substance: FUROSEMIDE
     Route: 065
  2. TREPROSTINOL [Suspect]
     Active Substance: TREPROSTINIL
     Indication: COR PULMONALE CHRONIC
     Dosage: DOSE- 18-42 MICROGRAMS
     Route: 055
     Dates: start: 20131120

REACTIONS (7)
  - Hypotension [Recovered/Resolved]
  - Hepatitis C [Unknown]
  - Hypovolaemia [Unknown]
  - Renal failure [Recovered/Resolved]
  - Portopulmonary hypertension [Unknown]
  - Oedema [Unknown]
  - Hepatic cirrhosis [Unknown]

NARRATIVE: CASE EVENT DATE: 201409
